FAERS Safety Report 25837815 (Version 2)
Quarter: 2025Q4

REPORT INFORMATION
  Report Type: Spontaneous
  Country: US (occurrence: US)
  Receive Date: 20250923
  Receipt Date: 20251007
  Transmission Date: 20260117
  Serious: Yes (Death, Hospitalization, Other)
  Sender: PFIZER
  Company Number: US-PFIZER INC-202500185219

PATIENT
  Sex: Male

DRUGS (2)
  1. OXBRYTA [Suspect]
     Active Substance: VOXELOTOR
     Indication: Sickle cell disease
     Dosage: UNK
     Route: 048
     Dates: start: 202102, end: 2021
  2. OXBRYTA [Suspect]
     Active Substance: VOXELOTOR
     Dosage: UNK
     Route: 048
     Dates: start: 202110, end: 202402

REACTIONS (4)
  - Sickle cell anaemia with crisis [Fatal]
  - Respiratory failure [Fatal]
  - Condition aggravated [Fatal]
  - Organ failure [Fatal]

NARRATIVE: CASE EVENT DATE: 20231201
